FAERS Safety Report 24378912 (Version 1)
Quarter: 2024Q3

REPORT INFORMATION
  Report Type: Other
  Country: US (occurrence: US)
  Receive Date: 20240930
  Receipt Date: 20240930
  Transmission Date: 20241016
  Serious: Yes (Death, Other)
  Sender: SERVIER
  Company Number: US-SERVIER-S24012275

PATIENT

DRUGS (5)
  1. ONCASPAR [Suspect]
     Active Substance: PEGASPARGASE
     Indication: Angiocentric lymphoma
     Dosage: UNK
     Route: 065
  2. DEXAMETHASONE [Suspect]
     Active Substance: DEXAMETHASONE
     Indication: Angiocentric lymphoma
     Dosage: UNK
     Route: 065
  3. METHOTREXATE [Suspect]
     Active Substance: METHOTREXATE
     Indication: Angiocentric lymphoma
     Dosage: UNK
     Route: 065
  4. ETOPOSIDE [Suspect]
     Active Substance: ETOPOSIDE
     Indication: Angiocentric lymphoma
     Dosage: UNK
     Route: 065
  5. IFOSFAMIDE [Suspect]
     Active Substance: IFOSFAMIDE
     Indication: Angiocentric lymphoma
     Dosage: UNK
     Route: 065

REACTIONS (4)
  - Death [Fatal]
  - Respiratory failure [Unknown]
  - Acute kidney injury [Unknown]
  - Septic shock [Unknown]
